FAERS Safety Report 4874331-5 (Version None)
Quarter: 2006Q1

REPORT INFORMATION
  Report Type: 
  Country: None (occurrence: None)
  Receive Date: 20060103
  Receipt Date: 20060103
  Transmission Date: 20060701
  Serious: Yes (Other)
  Sender: FDA-Public Use
  Company Number: None

PATIENT
  Age: 36 Year
  Sex: Female
  Weight: 54.4316 kg

DRUGS (4)
  1. CLONAZEPAM [Suspect]
     Indication: PANIC ATTACK
     Dosage: 0.25 MG TAB 1 TAB AM 2 TABS HS ORAL DISINTEGRATING TABS PO
     Route: 048
     Dates: start: 20050901, end: 20051201
  2. CLONAZEPAM [Suspect]
     Indication: POST-TRAUMATIC STRESS DISORDER
     Dosage: 0.25 MG TAB 1 TAB AM 2 TABS HS ORAL DISINTEGRATING TABS PO
     Route: 048
     Dates: start: 20050901, end: 20051201
  3. CLONAZEPAM [Suspect]
  4. CLONAZEPAM [Suspect]

REACTIONS (3)
  - DRUG LEVEL CHANGED [None]
  - PHARMACEUTICAL PRODUCT COMPLAINT [None]
  - TOXICOLOGIC TEST ABNORMAL [None]
